FAERS Safety Report 16239051 (Version 1)
Quarter: 2019Q2

REPORT INFORMATION
  Report Type: Spontaneous
  Country: US (occurrence: US)
  Receive Date: 20190425
  Receipt Date: 20190425
  Transmission Date: 20190711
  Serious: No
  Sender: FDA-Public Use
  Company Number: US-SA-2019SA112587

PATIENT
  Age: 55 Year
  Sex: Female

DRUGS (2)
  1. PRALUENT [Suspect]
     Active Substance: ALIROCUMAB
     Indication: BLOOD CHOLESTEROL
     Dosage: 75 MG, QOW
     Route: 058
     Dates: start: 20190315
  2. FENOFIBRATE. [Suspect]
     Active Substance: FENOFIBRATE
     Dosage: 145 MG
     Dates: start: 201901

REACTIONS (6)
  - Fatigue [Unknown]
  - Injection site pain [Unknown]
  - Dizziness [Recovering/Resolving]
  - Injection site mass [Recovered/Resolved]
  - Pain in extremity [Unknown]
  - Gastrointestinal disorder [Unknown]
